FAERS Safety Report 4490720-5 (Version None)
Quarter: 2004Q4

REPORT INFORMATION
  Report Type: 
  Country: None (occurrence: None)
  Receive Date: 20041102
  Receipt Date: 20040921
  Transmission Date: 20050328
  Serious: Yes (Hospitalization)
  Sender: FDA-Public Use
  Company Number: PHBS2004JP12698

PATIENT
  Age: 47 Year
  Sex: Female
  Weight: 53 kg

DRUGS (2)
  1. TEGRETOL [Suspect]
     Indication: PETIT MAL EPILEPSY
     Dosage: 100 MG, BID
     Route: 048
     Dates: start: 20040701, end: 20040801
  2. TEGRETOL [Suspect]
     Dosage: 100 MG, TID
     Route: 048
     Dates: start: 20040801, end: 20040910

REACTIONS (17)
  - ALANINE AMINOTRANSFERASE INCREASED [None]
  - ANOREXIA [None]
  - AREFLEXIA [None]
  - ASPARTATE AMINOTRANSFERASE INCREASED [None]
  - ASTHENIA [None]
  - BLOOD ALKALINE PHOSPHATASE INCREASED [None]
  - BLOOD LACTATE DEHYDROGENASE INCREASED [None]
  - C-REACTIVE PROTEIN INCREASED [None]
  - CSF CELL COUNT INCREASED [None]
  - CSF PROTEIN INCREASED [None]
  - GAMMA-GLUTAMYLTRANSFERASE INCREASED [None]
  - HEPATIC FUNCTION ABNORMAL [None]
  - MALAISE [None]
  - MYELITIS [None]
  - PYREXIA [None]
  - QUADRIPLEGIA [None]
  - RASH [None]
